FAERS Safety Report 10861920 (Version 1)
Quarter: 2015Q1

REPORT INFORMATION
  Report Type: Spontaneous
  Country: AR (occurrence: AR)
  Receive Date: 20150224
  Receipt Date: 20150224
  Transmission Date: 20150721
  Serious: Yes (Hospitalization, Other)
  Sender: FDA-Public Use
  Company Number: AR-PFIZER INC-2015064670

PATIENT
  Age: 59 Year
  Sex: Male

DRUGS (1)
  1. SUTENT [Suspect]
     Active Substance: SUNITINIB MALATE
     Indication: METASTATIC RENAL CELL CARCINOMA
     Dosage: UNK, CYCLIC (28 DAYS ON, 1 WEEK OFF)
     Dates: start: 20140506

REACTIONS (2)
  - Seizure [Unknown]
  - Immobile [Recovered/Resolved]

NARRATIVE: CASE EVENT DATE: 20150103
